FAERS Safety Report 24050524 (Version 1)
Quarter: 2024Q3

REPORT INFORMATION
  Report Type: Spontaneous
  Country: GB (occurrence: GB)
  Receive Date: 20240704
  Receipt Date: 20240704
  Transmission Date: 20241016
  Serious: Yes (Other)
  Sender: ORGANON
  Company Number: None

PATIENT
  Sex: Female

DRUGS (1)
  1. BETAMETHASONE DIPROPIONATE\CLOTRIMAZOLE [Suspect]
     Active Substance: BETAMETHASONE DIPROPIONATE\CLOTRIMAZOLE
     Indication: Dyshidrotic eczema
     Dosage: N/A
     Route: 065

REACTIONS (2)
  - Topical steroid withdrawal reaction [Not Recovered/Not Resolved]
  - Dyshidrotic eczema [Not Recovered/Not Resolved]

NARRATIVE: CASE EVENT DATE: 20110101
